FAERS Safety Report 4448896-1 (Version None)
Quarter: 2004Q3

REPORT INFORMATION
  Report Type: 
  Country: None (occurrence: None)
  Receive Date: 20040909
  Receipt Date: 20040901
  Transmission Date: 20050211
  Serious: Yes (Hospitalization)
  Sender: FDA-Public Use
  Company Number: TPA2004A01074

PATIENT
  Age: 52 Year
  Sex: Male
  Weight: 75.2971 kg

DRUGS (6)
  1. ACTOS [Suspect]
     Indication: DIABETES MELLITUS NON-INSULIN-DEPENDENT
     Dosage: 45 MG, 1 IN 1 D, PER ORAL
     Route: 048
     Dates: start: 20020101
  2. ALTACE [Concomitant]
  3. GLUCOVANCE (GLIBOMET) [Concomitant]
  4. METOPROLOL TARTRATE [Concomitant]
  5. PRECOSE [Concomitant]
  6. PRAVACHOL [Concomitant]

REACTIONS (1)
  - MYOCARDIAL INFARCTION [None]
